FAERS Safety Report 4452961-2 (Version None)
Quarter: 2004Q3

REPORT INFORMATION
  Report Type: 
  Country: None (occurrence: None)
  Receive Date: 20040916
  Receipt Date: 20040901
  Transmission Date: 20050211
  Serious: Yes (Hospitalization)
  Sender: FDA-Public Use
  Company Number: 2000474

PATIENT
  Age: 9 Year
  Sex: Male
  Weight: 48.3 kg

DRUGS (10)
  1. KEPPRA [Suspect]
     Indication: GRAND MAL CONVULSION
     Dosage: 250 MG 2/D PO
     Route: 048
     Dates: start: 20010525, end: 20010101
  2. KEPPRA [Suspect]
     Indication: GRAND MAL CONVULSION
     Dosage: 1000 MG 3/D PO
     Route: 048
     Dates: start: 20010101, end: 20020101
  3. KEPPRA [Suspect]
     Indication: GRAND MAL CONVULSION
     Dosage: 750 MG PO
     Route: 048
     Dates: start: 20020501
  4. KEPPRA [Suspect]
     Indication: GRAND MAL CONVULSION
     Dosage: PO
     Route: 048
     Dates: end: 20040201
  5. KEPPRA [Suspect]
     Indication: GRAND MAL CONVULSION
     Dosage: 375 MG PO
     Route: 048
     Dates: start: 20040201
  6. LAMICTAL [Concomitant]
  7. DEPAKOTE [Concomitant]
  8. DEPAKOTE [Concomitant]
  9. DEPAKOTE [Concomitant]
  10. LITHIUM CARBONATE [Concomitant]

REACTIONS (9)
  - ABNORMAL BEHAVIOUR [None]
  - AGGRESSION [None]
  - AGITATION [None]
  - ANGER [None]
  - HALLUCINATION, AUDITORY [None]
  - HOSTILITY [None]
  - PARANOIA [None]
  - SUICIDAL IDEATION [None]
  - WEIGHT INCREASED [None]
